FAERS Safety Report 4297248-6 (Version None)
Quarter: 2004Q1

REPORT INFORMATION
  Report Type: 
  Country: None (occurrence: None)
  Receive Date: 20040213
  Receipt Date: 20040206
  Transmission Date: 20041129
  Serious: Yes (Hospitalization)
  Sender: FDA-Public Use
  Company Number: 163-20785-04010031

PATIENT
  Age: 71 Year
  Sex: Male

DRUGS (1)
  1. THALOMID [Suspect]
     Indication: MULTIPLE MYELOMA
     Dosage: 50 MG, QHS, ORAL
     Route: 048
     Dates: start: 20010731

REACTIONS (5)
  - ASTHENIA [None]
  - CANDIDIASIS [None]
  - CATHETER RELATED INFECTION [None]
  - DRY MOUTH [None]
  - PERITONITIS [None]
